FAERS Safety Report 4286566-3 (Version None)
Quarter: 2004Q1

REPORT INFORMATION
  Report Type: 
  Country: None (occurrence: None)
  Receive Date: 20040204
  Receipt Date: 20040126
  Transmission Date: 20041129
  Serious: Yes (Hospitalization)
  Sender: FDA-Public Use
  Company Number: 002#4#2004-00024 (0)

PATIENT
  Age: 41 Year
  Sex: Female

DRUGS (1)
  1. CHLORPHENIRAMINE MALEATE AND PHENYLPROPANOLAMINE HCL [Suspect]
     Indication: NASOPHARYNGITIS
     Dosage: 12 IN 1 D, ORAL
     Route: 048
     Dates: start: 19981127, end: 19981217

REACTIONS (14)
  - ARTERIOGRAM CAROTID ABNORMAL [None]
  - ASTHENIA [None]
  - ATAXIA [None]
  - BASILAR ARTERY STENOSIS [None]
  - BLOOD GLUCOSE INCREASED [None]
  - CEREBROVASCULAR ACCIDENT [None]
  - DIABETES MELLITUS [None]
  - DIPLOPIA [None]
  - DYSARTHRIA [None]
  - HEADACHE [None]
  - HYPERTENSION [None]
  - NAUSEA [None]
  - NYSTAGMUS [None]
  - TINNITUS [None]
